FAERS Safety Report 6379242-4 (Version None)
Quarter: 2009Q3

REPORT INFORMATION
  Report Type: 
  Country: None (occurrence: None)
  Receive Date: 20090923
  Receipt Date: 20090923
  Transmission Date: 20100115
  Serious: Yes (Life-Threatening, Hospitalization)
  Sender: FDA-Public Use
  Company Number: None

PATIENT
  Sex: Female
  Weight: 81.4 kg

DRUGS (10)
  1. DIGOXIN [Suspect]
     Indication: CARDIAC FAILURE CONGESTIVE
     Dates: start: 20090613, end: 20090622
  2. ASPIRIN [Concomitant]
  3. ATORVASTATIN [Concomitant]
  4. GABAPENTIN [Concomitant]
  5. ISOSORBIDE MONONITRATE [Concomitant]
  6. LISINOPRIL [Concomitant]
  7. LANTUS [Concomitant]
  8. METOPROLOL [Concomitant]
  9. TEMAZEPAM [Concomitant]
  10. APAP TAB [Concomitant]

REACTIONS (5)
  - BRADYCARDIA [None]
  - DIZZINESS [None]
  - DYSPNOEA [None]
  - FALL [None]
  - HEAD INJURY [None]
